FAERS Safety Report 7291088-1 (Version None)
Quarter: 2011Q1

REPORT INFORMATION
  Report Type: 
  Country: None (occurrence: None)
  Receive Date: 20110214
  Receipt Date: 20110203
  Transmission Date: 20110831
  Serious: Yes (Hospitalization)
  Sender: FDA-Public Use
  Company Number: US-ASTRAZENECA-2009UW02803

PATIENT
  Sex: Female

DRUGS (2)
  1. NEXIUM [Suspect]
     Dosage: TWICE A DAY
     Route: 048
  2. NEXIUM [Suspect]
     Route: 048

REACTIONS (4)
  - SMALL INTESTINE OPERATION [None]
  - PAIN [None]
  - GASTRIC ULCER [None]
  - DRUG DOSE OMISSION [None]
